FAERS Safety Report 9117132 (Version 3)
Quarter: 2013Q2

REPORT INFORMATION
  Report Type: Spontaneous
  Country: JP (occurrence: JP)
  Receive Date: 20130225
  Receipt Date: 20130401
  Transmission Date: 20140414
  Serious: Yes (Hospitalization)
  Sender: FDA-Public Use
  Company Number: JP-JNJFOC-20130201365

PATIENT
  Age: 48 Year
  Sex: Female

DRUGS (4)
  1. INVEGA [Suspect]
     Indication: DELUSIONAL DISORDER, UNSPECIFIED TYPE
     Route: 048
     Dates: start: 20121221, end: 20130124
  2. SODIUM VALPROATE [Concomitant]
     Route: 048
  3. VEGETAMIN-A [Concomitant]
     Route: 048
  4. SILECE [Concomitant]
     Route: 048

REACTIONS (2)
  - Jaundice cholestatic [Recovering/Resolving]
  - Eosinophil count increased [Unknown]
